FAERS Safety Report 5345036-1 (Version None)
Quarter: 2007Q2

REPORT INFORMATION
  Report Type: 
  Country: None (occurrence: None)
  Receive Date: 20070425
  Receipt Date: 20061025
  Transmission Date: 20071010
  Serious: Yes (Hospitalization)
  Sender: FDA-Public Use
  Company Number: 2006-BP-12547BP

PATIENT
  Sex: Female

DRUGS (10)
  1. FLOMAX [Suspect]
     Dosage: 0.8 MG (0.4 MG,2 IN 1 D),PO
     Route: 048
  2. ASPIRIN [Concomitant]
  3. LASIX [Concomitant]
  4. LISINOPRIL [Concomitant]
  5. ZOCOR [Concomitant]
  6. IMDUR [Concomitant]
  7. SINGULAIR [Concomitant]
  8. COMBIVENT (COMBIVENT /01261001/) [Concomitant]
  9. NEXIUM [Concomitant]
  10. NORVASC [Concomitant]

REACTIONS (1)
  - SYNCOPE [None]
